FAERS Safety Report 8184435 (Version 2)
Quarter: 2013Q4

REPORT INFORMATION
  Report Type: Spontaneous
  Country: US (occurrence: US)
  Receive Date: 20111017
  Receipt Date: 20131213
  Transmission Date: 20140711
  Serious: Yes (Hospitalization, Other)
  Sender: FDA-Public Use
  Company Number: US-ASTRAZENECA-2011SE60614

PATIENT
  Age: 15 Year
  Sex: Male
  Weight: 136.1 kg

DRUGS (3)
  1. SEROQUEL XR [Suspect]
     Indication: BIPOLAR DISORDER
     Route: 048
     Dates: end: 201310
  2. SEROQUEL XR [Suspect]
     Indication: AFFECTIVE DISORDER
     Route: 048
     Dates: end: 201310
  3. OTHER MEDICATIONS [Concomitant]

REACTIONS (5)
  - Self injurious behaviour [Unknown]
  - Antisocial behaviour [Unknown]
  - Suicidal ideation [Recovered/Resolved]
  - Abnormal behaviour [Not Recovered/Not Resolved]
  - Weight increased [Not Recovered/Not Resolved]
